FAERS Safety Report 21191000 (Version 1)
Quarter: 2022Q3

REPORT INFORMATION
  Report Type: Spontaneous
  Country: JP (occurrence: JP)
  Receive Date: 20220809
  Receipt Date: 20220809
  Transmission Date: 20221027
  Serious: Yes (Other)
  Sender: FDA-Public Use
  Company Number: JP-BRISTOL-MYERS SQUIBB COMPANY-2022-085603

PATIENT
  Age: 79 Year
  Sex: Female

DRUGS (1)
  1. ELIQUIS [Suspect]
     Active Substance: APIXABAN
     Indication: Cerebrovascular accident prophylaxis
     Dosage: 1 TABLET IN THE MORNING AND EVENING
     Route: 048
     Dates: start: 202203

REACTIONS (7)
  - Haemorrhage subcutaneous [Unknown]
  - Pericardial effusion [Unknown]
  - Blood albumin decreased [Unknown]
  - Ear pruritus [Unknown]
  - Thrombosis [Unknown]
  - Pulmonary embolism [Unknown]
  - Anaemia [Unknown]

NARRATIVE: CASE EVENT DATE: 20220101
